FAERS Safety Report 23054557 (Version 1)
Quarter: 2023Q4

REPORT INFORMATION
  Report Type: Spontaneous
  Country: US (occurrence: None)
  Receive Date: 20231010
  Receipt Date: 20231010
  Transmission Date: 20240110
  Serious: No
  Sender: FDA-Public Use
  Company Number: None

PATIENT
  Age: 74 Year
  Sex: Female
  Weight: 84.15 kg

DRUGS (1)
  1. LINZESS [Suspect]
     Active Substance: LINACLOTIDE
     Indication: Constipation
     Dosage: OTHER QUANTITY : 4 CAPSULE(S);?
     Route: 048
     Dates: start: 20231007, end: 20231010

REACTIONS (10)
  - Abdominal pain upper [None]
  - Gait disturbance [None]
  - Nausea [None]
  - Abdominal distension [None]
  - Dizziness [None]
  - Asthenia [None]
  - Eructation [None]
  - Diarrhoea [None]
  - Palpitations [None]
  - Swelling of eyelid [None]

NARRATIVE: CASE EVENT DATE: 20231010
